FAERS Safety Report 9486562 (Version 1)
Quarter: 2013Q3

REPORT INFORMATION
  Report Type: Report from Study
  Country: US (occurrence: US)
  Receive Date: 20130829
  Receipt Date: 20130829
  Transmission Date: 20140515
  Serious: Yes (Other)
  Sender: FDA-Public Use
  Company Number: PHEH2013US018141

PATIENT
  Sex: Male

DRUGS (1)
  1. GILENYA [Suspect]
     Indication: MULTIPLE SCLEROSIS
     Dosage: 0.5 MG, QD
     Route: 048
     Dates: start: 20130326

REACTIONS (5)
  - Nuclear magnetic resonance imaging abnormal [Unknown]
  - CSF test abnormal [Unknown]
  - Central nervous system lesion [Unknown]
  - Gait disturbance [Unknown]
  - Asthenia [Unknown]
